FAERS Safety Report 16840788 (Version 1)
Quarter: 2019Q3

REPORT INFORMATION
  Report Type: Report from Study
  Country: GB (occurrence: GB)
  Receive Date: 20190923
  Receipt Date: 20190923
  Transmission Date: 20191005
  Serious: Yes (Other)
  Sender: FDA-Public Use
  Company Number: GB-JNJFOC-20190921261

PATIENT
  Age: 37 Year
  Sex: Female

DRUGS (6)
  1. STELARA [Suspect]
     Active Substance: USTEKINUMAB
     Indication: PSORIASIS
     Dosage: ON WEEK 4
     Route: 058
     Dates: start: 20190722
  2. MIRTAZAPINE. [Concomitant]
     Active Substance: MIRTAZAPINE
  3. NIFEDIPINE. [Concomitant]
     Active Substance: NIFEDIPINE
  4. ORAMORPH [Concomitant]
     Active Substance: MORPHINE SULFATE
  5. HYDROCODONE [Concomitant]
     Active Substance: HYDROCODONE
  6. FOLIC ACID. [Concomitant]
     Active Substance: FOLIC ACID

REACTIONS (2)
  - Kidney infection [Unknown]
  - Bronchitis [Not Recovered/Not Resolved]
